FAERS Safety Report 6811973-1 (Version None)
Quarter: 2010Q3

REPORT INFORMATION
  Report Type: 
  Country: None (occurrence: None)
  Receive Date: 20100701
  Receipt Date: 20100618
  Transmission Date: 20110219
  Serious: Yes (Hospitalization)
  Sender: FDA-Public Use
  Company Number: US-ELI_LILLY_AND_COMPANY-US201006005255

PATIENT
  Age: 71 Year
  Sex: Male

DRUGS (5)
  1. HUMULIN N [Suspect]
     Indication: TYPE 2 DIABETES MELLITUS
     Dosage: 54 U, UNK
     Dates: start: 20080618
  2. HUMULIN N [Suspect]
     Dosage: 54 U, UNK
     Dates: start: 20100618
  3. HUMULIN N [Suspect]
     Dosage: 54 U, UNK
     Dates: start: 20100618
  4. METFORMIN HCL [Concomitant]
     Dosage: 1000 MG, UNK
  5. GLYBURIDE [Concomitant]
     Dosage: 2 MG, UNK

REACTIONS (1)
  - BLOOD POTASSIUM INCREASED [None]
